FAERS Safety Report 6609384-7 (Version None)
Quarter: 2010Q1

REPORT INFORMATION
  Report Type: 
  Country: None (occurrence: None)
  Receive Date: 20100302
  Receipt Date: 20100222
  Transmission Date: 20100710
  Serious: Yes (Other)
  Sender: FDA-Public Use
  Company Number: HR-TEVA-225266ISR

PATIENT
  Sex: Male

DRUGS (4)
  1. CISPLATIN [Suspect]
  2. DOXORUBICIN HCL [Suspect]
  3. BLOOD AND RELATED PRODUCTS [Concomitant]
  4. ALBUMIN (HUMAN) [Concomitant]

REACTIONS (8)
  - ACTIVATED PARTIAL THROMBOPLASTIN TIME PROLONGED [None]
  - HAEMOGLOBIN DECREASED [None]
  - HAEMORRHAGE [None]
  - OEDEMA [None]
  - PERITONEAL HAEMORRHAGE [None]
  - PLATELET COUNT DECREASED [None]
  - PROTHROMBIN TIME SHORTENED [None]
  - TACHYCARDIA [None]
